FAERS Safety Report 9618405 (Version 1)
Quarter: 2013Q4

REPORT INFORMATION
  Report Type: Report from Study
  Country: BR (occurrence: BR)
  Receive Date: 20131014
  Receipt Date: 20131014
  Transmission Date: 20140711
  Serious: Yes (Other)
  Sender: FDA-Public Use
  Company Number: BR-ROCHE-1287786

PATIENT
  Age: 34 Year
  Sex: Male

DRUGS (2)
  1. RIVOTRIL [Suspect]
     Indication: SCHIZOPHRENIA
     Route: 065
  2. ZYPREXA [Concomitant]
     Route: 065

REACTIONS (6)
  - Anxiety [Unknown]
  - Delirium [Unknown]
  - Social avoidant behaviour [Unknown]
  - Flat affect [Unknown]
  - Apathy [Unknown]
  - Disease progression [Unknown]
